FAERS Safety Report 10901988 (Version 1)
Quarter: 2015Q1

REPORT INFORMATION
  Report Type: Spontaneous
  Country: US (occurrence: US)
  Receive Date: 20150310
  Receipt Date: 20150310
  Transmission Date: 20150721
  Serious: Yes (Other)
  Sender: FDA-Public Use
  Company Number: US-BAYER-2015-034254

PATIENT
  Sex: Female

DRUGS (1)
  1. BETASERON [Suspect]
     Active Substance: INTERFERON BETA-1B
     Dosage: UNK, QOD

REACTIONS (8)
  - Acne [None]
  - Balance disorder [None]
  - Motor dysfunction [None]
  - Tremor [None]
  - Drug ineffective [None]
  - Agraphia [None]
  - Hypoaesthesia [None]
  - Dysphonia [None]
